FAERS Safety Report 8447488-7 (Version None)
Quarter: 2012Q2

REPORT INFORMATION
  Report Type: 
  Country: None (occurrence: None)
  Receive Date: 20120619
  Receipt Date: 20120612
  Transmission Date: 20120825
  Serious: No
  Sender: FDA-Public Use
  Company Number: US-PFIZER INC-2012142215

PATIENT
  Sex: Male

DRUGS (2)
  1. PENICILLIN G POTASSIUM [Suspect]
     Dosage: UNK
  2. BIAXIN [Suspect]
     Dosage: UNK

REACTIONS (1)
  - DRUG HYPERSENSITIVITY [None]
